FAERS Safety Report 15470092 (Version 8)
Quarter: 2020Q3

REPORT INFORMATION
  Report Type: Report from Study
  Country: US (occurrence: US)
  Receive Date: 20181005
  Receipt Date: 20200730
  Transmission Date: 20201102
  Serious: Yes (Hospitalization, Other)
  Sender: FDA-Public Use
  Company Number: US-ACTELION-A-US2018-179683

PATIENT
  Age: 38 Year
  Sex: Female
  Weight: 58.96 kg

DRUGS (3)
  1. ELIQUIS [Concomitant]
     Active Substance: APIXABAN
  2. ADCIRCA [Concomitant]
     Active Substance: TADALAFIL
  3. OPSUMIT [Suspect]
     Active Substance: MACITENTAN
     Indication: PULMONARY ARTERIAL HYPERTENSION
     Dosage: 10 MG, QD
     Route: 048

REACTIONS (11)
  - Renal pain [Unknown]
  - Hospitalisation [Unknown]
  - Dyspnoea [Unknown]
  - Seizure [Unknown]
  - Rib fracture [Unknown]
  - Infection [Unknown]
  - Oxygen saturation decreased [Unknown]
  - Dialysis [Unknown]
  - Renal transplant [Unknown]
  - Abscess oral [Unknown]
  - Renal disorder [Unknown]

NARRATIVE: CASE EVENT DATE: 201810
